FAERS Safety Report 25448337 (Version 1)
Quarter: 2025Q2

REPORT INFORMATION
  Report Type: Spontaneous
  Country: US (occurrence: US)
  Receive Date: 20250617
  Receipt Date: 20250617
  Transmission Date: 20250717
  Serious: Yes (Hospitalization, Other)
  Sender: BRISTOL-MYERS SQUIBB COMPANY
  Company Number: US-BRISTOL-MYERS SQUIBB COMPANY-2025-086186

PATIENT
  Age: 78 Year
  Sex: Female

DRUGS (1)
  1. ELIQUIS [Suspect]
     Active Substance: APIXABAN
     Indication: Product used for unknown indication
     Route: 048

REACTIONS (6)
  - Bronchitis [Unknown]
  - Influenza [Unknown]
  - Atrial fibrillation [Unknown]
  - Visual impairment [Unknown]
  - Electrolyte imbalance [Unknown]
  - Joint dislocation [Unknown]

NARRATIVE: CASE EVENT DATE: 20241201
